FAERS Safety Report 8838826 (Version 1)
Quarter: 2012Q4

REPORT INFORMATION
  Report Type: 
  Country: IT (occurrence: IT)
  Receive Date: 20121014
  Receipt Date: 20121014
  Transmission Date: 20130627
  Serious: Yes (Hospitalization)
  Sender: FDA-Public Use
  Company Number: IT-TEVA-363399ISR

PATIENT
  Age: 31 Year
  Sex: Male

DRUGS (4)
  1. DIAZEPAM [Suspect]
     Dosage: 30 Gtt Daily;
     Route: 048
     Dates: start: 20120701, end: 20120820
  2. ZYPREXA [Suspect]
     Dosage: 15 Milligram Daily;
     Route: 048
     Dates: start: 20120601, end: 20120820
  3. TAVOR [Suspect]
     Dosage: 1 Milligram Daily;
     Route: 048
     Dates: start: 20120701, end: 20120820
  4. ALCOVER [Concomitant]
     Route: 048

REACTIONS (4)
  - Sopor [Recovering/Resolving]
  - Hyperthermia [Recovering/Resolving]
  - Rhabdomyolysis [Recovering/Resolving]
  - Drug abuse [Recovering/Resolving]
